FAERS Safety Report 5636320-2 (Version None)
Quarter: 2008Q1

REPORT INFORMATION
  Report Type: 
  Country: None (occurrence: None)
  Receive Date: 20080225
  Receipt Date: 20080225
  Transmission Date: 20080703
  Serious: Yes (Life-Threatening, Hospitalization)
  Sender: FDA-Public Use
  Company Number: PHEH1996US08403

PATIENT
  Age: 46 Year
  Sex: Male
  Weight: 59.928 kg

DRUGS (6)
  1. SDZ HTF 919  VS. PLACEBO [Suspect]
     Indication: IRRITABLE BOWEL SYNDROME
     Dosage: 2 MG, BID
     Route: 048
     Dates: start: 19950526
  2. SDZ HTF 919  VS. PLACEBO [Suspect]
  3. SDZ HTF 919  VS. PLACEBO [Suspect]
  4. METRONDIAZOLE (METRONIDAZOLE) [Concomitant]
     Indication: INFECTION
  5. VERSED [Concomitant]
     Indication: LOCAL ANAESTHESIA
  6. DEMEROL [Concomitant]
     Indication: LOCAL ANAESTHESIA

REACTIONS (6)
  - ARTERIAL OCCLUSIVE DISEASE [None]
  - CHEST PAIN [None]
  - CORONARY ARTERY OCCLUSION [None]
  - MYOCARDIAL INFARCTION [None]
  - SURGERY [None]
  - VENTRICULAR FIBRILLATION [None]
